FAERS Safety Report 18257464 (Version 1)
Quarter: 2020Q3

REPORT INFORMATION
  Report Type: Spontaneous
  Country: US (occurrence: US)
  Receive Date: 20200911
  Receipt Date: 20200911
  Transmission Date: 20201103
  Serious: No
  Sender: FDA-Public Use
  Company Number: US-BAYER-2020-191968

PATIENT
  Age: 38 Year
  Sex: Male

DRUGS (1)
  1. INTERFERON BETA ? 1B [Suspect]
     Active Substance: INTERFERON BETA-1B
     Indication: PRODUCT USED FOR UNKNOWN INDICATION
     Dosage: 1 MG, QID
     Route: 048
     Dates: start: 20200830

REACTIONS (4)
  - Pyrexia [Unknown]
  - Fatigue [Unknown]
  - Back pain [Unknown]
  - Depressed mood [Unknown]
